FAERS Safety Report 12174567 (Version 1)
Quarter: 2016Q1

REPORT INFORMATION
  Report Type: Spontaneous
  Country: US (occurrence: US)
  Receive Date: 20160312
  Receipt Date: 20160312
  Transmission Date: 20160526
  Serious: No
  Sender: FDA-Public Use
  Company Number: US-ELI_LILLY_AND_COMPANY-US201603003832

PATIENT
  Age: 85 Year
  Sex: Female

DRUGS (2)
  1. FORTEO [Suspect]
     Active Substance: TERIPARATIDE
     Dosage: UNK, UNKNOWN
     Route: 065
  2. FORTEO [Suspect]
     Active Substance: TERIPARATIDE
     Dosage: UNK, UNKNOWN
     Route: 065
     Dates: start: 20160205

REACTIONS (6)
  - Fall [Unknown]
  - Back injury [Unknown]
  - Pain [Unknown]
  - Wrong technique in product usage process [Unknown]
  - Neck injury [Unknown]
  - Accidental underdose [Unknown]

NARRATIVE: CASE EVENT DATE: 20160205
